FAERS Safety Report 18124597 (Version 1)
Quarter: 2020Q3

REPORT INFORMATION
  Report Type: Spontaneous
  Country: DE (occurrence: US)
  Receive Date: 20200807
  Receipt Date: 20200807
  Transmission Date: 20201103
  Serious: Yes (Hospitalization)
  Sender: FDA-Public Use
  Company Number: US-AKRON, INC.-2088290

PATIENT
  Age: 27 Year
  Sex: Male

DRUGS (1)
  1. ZOSTRIX ORIGINAL STRENGTH [Suspect]
     Active Substance: CAPSAICIN

REACTIONS (1)
  - Abdominal pain [Recovered/Resolved]
